FAERS Safety Report 5581947-X (Version None)
Quarter: 2008Q1

REPORT INFORMATION
  Report Type: 
  Country: None (occurrence: None)
  Receive Date: 20080104
  Receipt Date: 20071221
  Transmission Date: 20080703
  Serious: Yes (Other)
  Sender: FDA-Public Use
  Company Number: B0498020A

PATIENT
  Age: 56 Year
  Sex: Female

DRUGS (2)
  1. ADARTREL [Suspect]
     Indication: RESTLESS LEGS SYNDROME
     Route: 048
     Dates: start: 20070907, end: 20071102
  2. MERCILON [Concomitant]
     Indication: CONTRACEPTION
     Route: 048
     Dates: start: 19720101

REACTIONS (4)
  - OSCILLOPSIA [None]
  - PARAESTHESIA [None]
  - SEDATION [None]
  - SYNCOPE [None]
